FAERS Safety Report 7941409-9 (Version None)
Quarter: 2011Q4

REPORT INFORMATION
  Report Type: 
  Country: None (occurrence: None)
  Receive Date: 20111122
  Receipt Date: 20111110
  Transmission Date: 20120403
  Serious: Yes (Other)
  Sender: FDA-Public Use
  Company Number: 11-708

PATIENT
  Age: 38 Year
  Sex: Female
  Weight: 77.1 kg

DRUGS (1)
  1. NAPROXEN SODIUM [Suspect]
     Indication: HEADACHE
     Dosage: 440 MG, ONCE, ORAL
     Route: 048
     Dates: start: 20111105, end: 20111105

REACTIONS (15)
  - NERVOUSNESS [None]
  - DIARRHOEA [None]
  - MALAISE [None]
  - FATIGUE [None]
  - DIZZINESS [None]
  - CHILLS [None]
  - ABDOMINAL PAIN UPPER [None]
  - TREMOR [None]
  - LOSS OF CONSCIOUSNESS [None]
  - VOMITING [None]
  - HEART RATE INCREASED [None]
  - HYPERHIDROSIS [None]
  - SOMNOLENCE [None]
  - DYSPNOEA [None]
  - DYSGEUSIA [None]
